FAERS Safety Report 14341527 (Version 3)
Quarter: 2018Q4

REPORT INFORMATION
  Report Type: Spontaneous
  Country: FR (occurrence: FR)
  Receive Date: 20180102
  Receipt Date: 20181122
  Transmission Date: 20190204
  Serious: Yes (Hospitalization)
  Sender: FDA-Public Use
  Company Number: FR-MERCK KGAA-2038118

PATIENT
  Age: 64 Year
  Sex: Female

DRUGS (1)
  1. EUTHYROX [Suspect]
     Active Substance: LEVOTHYROXINE SODIUM
     Indication: THYROID DISORDER
     Route: 048
     Dates: start: 2017, end: 201710

REACTIONS (20)
  - Blood thyroid stimulating hormone decreased [None]
  - Syncope [Recovering/Resolving]
  - Blood creatine increased [None]
  - Sleep disorder [Recovering/Resolving]
  - Acute myocardial infarction [Recovering/Resolving]
  - Weight increased [Recovering/Resolving]
  - Alopecia [Recovering/Resolving]
  - Balance disorder [Recovering/Resolving]
  - Fatigue [Recovering/Resolving]
  - Malaise [Recovering/Resolving]
  - Headache [Recovering/Resolving]
  - Pain in extremity [Recovering/Resolving]
  - Blood cholesterol increased [None]
  - Palpitations [Recovering/Resolving]
  - Depression [Recovering/Resolving]
  - Chest pain [Recovering/Resolving]
  - Dizziness [Recovering/Resolving]
  - Vomiting [Recovering/Resolving]
  - Blood glucose decreased [None]
  - Hot flush [Recovering/Resolving]

NARRATIVE: CASE EVENT DATE: 201706
